FAERS Safety Report 23760284 (Version 2)
Quarter: 2024Q2

REPORT INFORMATION
  Report Type: Report from Study
  Country: US (occurrence: US)
  Receive Date: 20240419
  Receipt Date: 20240506
  Transmission Date: 20240716
  Serious: Yes (Other)
  Sender: FDA-Public Use
  Company Number: US-HORIZON THERAPEUTICS-HZN-2023-011240

PATIENT

DRUGS (20)
  1. TEPEZZA [Suspect]
     Active Substance: TEPROTUMUMAB-TRBW
     Indication: Toxic goitre
     Dosage: 580 MG (10MG/KG), FIRST INFUSION
     Route: 042
     Dates: start: 20231110
  2. TEPEZZA [Suspect]
     Active Substance: TEPROTUMUMAB-TRBW
     Dosage: 1080 MG (20MG/KG), 2ND INFUSION
     Route: 042
     Dates: start: 20231201
  3. TEPEZZA [Suspect]
     Active Substance: TEPROTUMUMAB-TRBW
     Dosage: 1060 MG, EVERY 3 WEEKS, 3RD INFUSION
     Route: 042
     Dates: start: 20231222
  4. TEPEZZA [Suspect]
     Active Substance: TEPROTUMUMAB-TRBW
     Dosage: 1044 MG, EVERY 3 WEEKS, 4TH INFUSION
     Route: 042
     Dates: start: 20240112
  5. TEPEZZA [Suspect]
     Active Substance: TEPROTUMUMAB-TRBW
     Dosage: 960 MG, 5TH INFUSION
     Route: 042
     Dates: start: 20240213
  6. TEPEZZA [Suspect]
     Active Substance: TEPROTUMUMAB-TRBW
     Dosage: 900 MG, 6TH INFUSION
     Route: 042
     Dates: start: 20240308
  7. TEPEZZA [Suspect]
     Active Substance: TEPROTUMUMAB-TRBW
     Dosage: 900 MG, EVERY 3 WEEKS, 7TH INFUSION
     Route: 042
     Dates: start: 20240329
  8. TEPEZZA [Suspect]
     Active Substance: TEPROTUMUMAB-TRBW
     Dosage: 880 MG, EVERY 3 WEEKS, 8TH INFUSION
     Route: 042
     Dates: start: 20240419, end: 20240419
  9. PANTOPRAZOLE [Concomitant]
     Active Substance: PANTOPRAZOLE
  10. SERTRALINE [Concomitant]
     Active Substance: SERTRALINE HYDROCHLORIDE
  11. FOLIC ACID [Concomitant]
     Active Substance: FOLIC ACID
  12. METFORMIN [Concomitant]
     Active Substance: METFORMIN HYDROCHLORIDE
  13. METOPROLOL SUCCINATE [Concomitant]
     Active Substance: METOPROLOL SUCCINATE
  14. ROSUVASTATIN [Concomitant]
     Active Substance: ROSUVASTATIN
  15. NORTRIPTYLINE [Concomitant]
     Active Substance: NORTRIPTYLINE
  16. PREDNISONE [Concomitant]
     Active Substance: PREDNISONE
  17. METHOTREXATE [Concomitant]
     Active Substance: METHOTREXATE
  18. VITAMIN D3 [Concomitant]
     Active Substance: CHOLECALCIFEROL
  19. MINERALS\VITAMINS [Concomitant]
     Active Substance: MINERALS\VITAMINS
  20. SYNTHROID [Concomitant]
     Active Substance: LEVOTHYROXINE SODIUM

REACTIONS (7)
  - Diverticulitis [Unknown]
  - Middle ear effusion [Not Recovered/Not Resolved]
  - Throat irritation [Not Recovered/Not Resolved]
  - Hypoacusis [Not Recovered/Not Resolved]
  - Muscle spasms [Not Recovered/Not Resolved]
  - Headache [Not Recovered/Not Resolved]
  - Dysgeusia [Not Recovered/Not Resolved]

NARRATIVE: CASE EVENT DATE: 20231201
